FAERS Safety Report 13160095 (Version 1)
Quarter: 2017Q1

REPORT INFORMATION
  Report Type: Spontaneous
  Country: HR (occurrence: HR)
  Receive Date: 20170127
  Receipt Date: 20170127
  Transmission Date: 20170428
  Serious: Yes (Life-Threatening)
  Sender: FDA-Public Use
  Company Number: HR-ELI_LILLY_AND_COMPANY-HR201701008199

PATIENT
  Age: 34 Year
  Sex: Female

DRUGS (8)
  1. OLANZAPINE. [Suspect]
     Active Substance: OLANZAPINE
     Indication: ENCEPHALOPATHY
     Route: 065
  2. RISPERIDONE. [Suspect]
     Active Substance: RISPERIDONE
     Indication: MENTAL DISORDER
     Route: 065
  3. FLURAZEPAM [Suspect]
     Active Substance: FLURAZEPAM\FLURAZEPAM HYDROCHLORIDE
     Indication: MENTAL DISORDER
     Route: 065
  4. DIAZEPAM. [Suspect]
     Active Substance: DIAZEPAM
     Indication: MENTAL DISORDER
     Route: 065
  5. CLOZAPINE. [Suspect]
     Active Substance: CLOZAPINE
     Indication: MENTAL DISORDER
  6. FLUVOXAMINE [Suspect]
     Active Substance: FLUVOXAMINE
     Indication: MENTAL DISORDER
     Route: 065
  7. SULPIRIDE [Suspect]
     Active Substance: SULPIRIDE
     Indication: ENCEPHALOPATHY
     Route: 065
  8. HALDOL [Suspect]
     Active Substance: HALOPERIDOL
     Indication: ENCEPHALOPATHY

REACTIONS (2)
  - Encephalitis autoimmune [Recovered/Resolved]
  - Off label use [Unknown]
